FAERS Safety Report 16312399 (Version 4)
Quarter: 2019Q3

REPORT INFORMATION
  Report Type: Spontaneous
  Country: US (occurrence: US)
  Receive Date: 20190515
  Receipt Date: 20190731
  Transmission Date: 20191004
  Serious: No
  Sender: FDA-Public Use
  Company Number: US-BIOGEN-2019BI00737410

PATIENT
  Age: 49 Year
  Sex: Female

DRUGS (3)
  1. TYSABRI [Suspect]
     Active Substance: NATALIZUMAB
     Indication: MULTIPLE SCLEROSIS
     Route: 042
     Dates: start: 20190326
  2. GABAPENTIN. [Concomitant]
     Active Substance: GABAPENTIN
     Route: 065
  3. BACLOFEN. [Concomitant]
     Active Substance: BACLOFEN
     Route: 065

REACTIONS (10)
  - Fatigue [Unknown]
  - Vaginal infection [Unknown]
  - Abdominal distension [Not Recovered/Not Resolved]
  - Dehydration [Not Recovered/Not Resolved]
  - Dysuria [Unknown]
  - Chromaturia [Recovered/Resolved]
  - Gastrointestinal disorder [Unknown]
  - Skin discolouration [Unknown]
  - Constipation [Not Recovered/Not Resolved]
  - Feeling abnormal [Unknown]

NARRATIVE: CASE EVENT DATE: 201903
